FAERS Safety Report 8668688 (Version 2)
Quarter: 2015Q1

REPORT INFORMATION
  Report Type: Spontaneous
  Country: US (occurrence: US)
  Receive Date: 20120717
  Receipt Date: 20150303
  Transmission Date: 20150721
  Serious: Yes (Other)
  Sender: FDA-Public Use
  Company Number: US-ELI_LILLY_AND_COMPANY-US201207001586

PATIENT
  Sex: Female

DRUGS (10)
  1. INSULIN N [Concomitant]
     Dosage: 14 DF, EACH EVENING
     Route: 064
  2. INSULIN REGULAR HM [Concomitant]
     Active Substance: INSULIN NOS
     Indication: GESTATIONAL DIABETES
     Dosage: 8 DF, QD
     Route: 064
  3. INSULIN N [Concomitant]
     Indication: GESTATIONAL DIABETES
     Dosage: 22 DF, EACH MORNING
     Route: 064
  4. INSULIN N [Concomitant]
     Dosage: 14 DF, EACH EVENING
     Route: 064
  5. PROZAC [Suspect]
     Active Substance: FLUOXETINE HYDROCHLORIDE
     Indication: PRODUCT USED FOR UNKNOWN INDICATION
     Dosage: 40 MG, QD
     Route: 064
  6. PROZAC [Suspect]
     Active Substance: FLUOXETINE HYDROCHLORIDE
     Indication: PRODUCT USED FOR UNKNOWN INDICATION
     Dosage: 40 MG, QD
     Route: 064
  7. PRENATAL VITAMINS                  /02014401/ [Concomitant]
     Active Substance: VITAMINS
     Route: 064
  8. INSULIN REGULAR HM [Concomitant]
     Active Substance: INSULIN NOS
     Indication: GESTATIONAL DIABETES
     Dosage: 8 DF, QD
     Route: 064
  9. PRENATAL VITAMINS                  /02014401/ [Concomitant]
     Active Substance: VITAMINS
     Route: 064
  10. INSULIN N [Concomitant]
     Indication: GESTATIONAL DIABETES
     Dosage: 22 DF, EACH MORNING
     Route: 064

REACTIONS (4)
  - Autism [Unknown]
  - Learning disorder [Unknown]
  - Developmental delay [Unknown]
  - Foetal exposure during pregnancy [Unknown]
